FAERS Safety Report 6245547-0 (Version None)
Quarter: 2009Q2

REPORT INFORMATION
  Report Type: 
  Country: None (occurrence: None)
  Receive Date: 20090625
  Receipt Date: 20090623
  Transmission Date: 20091009
  Serious: Yes (Hospitalization)
  Sender: FDA-Public Use
  Company Number: FR-RB-015621-09

PATIENT
  Age: 42 Year
  Sex: Male

DRUGS (3)
  1. SUBUTEX [Suspect]
     Route: 060
  2. DAONIL [Concomitant]
     Indication: TYPE 2 DIABETES MELLITUS
     Dosage: DOSING INFORMATION UNKNOWN.
     Route: 065
  3. EUROBIOL [Concomitant]
     Indication: DRUG USE FOR UNKNOWN INDICATION
     Dosage: DOSING INFORMATION UNKNOWN.
     Route: 065

REACTIONS (2)
  - HEPATITIS B [None]
  - HEPATITIS C [None]
